FAERS Safety Report 20024531 (Version 2)
Quarter: 2021Q4

REPORT INFORMATION
  Report Type: Report from Study
  Country: DE (occurrence: DE)
  Receive Date: 20211102
  Receipt Date: 20211115
  Transmission Date: 20220303
  Serious: Yes (Other)
  Sender: FDA-Public Use
  Company Number: DE-ROCHE-2385886

PATIENT
  Age: 40 Year
  Sex: Female

DRUGS (19)
  1. ACYCLOVIR [Suspect]
     Active Substance: ACYCLOVIR
     Indication: Product used for unknown indication
     Dosage: UNK
     Route: 065
  2. HEPATITIS B VIRUS VACCINE [Suspect]
     Active Substance: HEPATITIS B VIRUS VACCINE
     Indication: Immunisation
     Dosage: UNK
     Route: 065
  3. PFIZER-BIONTECH COVID-19 VACCINE [Suspect]
     Active Substance: TOZINAMERAN
     Indication: Product used for unknown indication
     Dosage: UNK (SECOND VACCINATION)
     Route: 065
     Dates: start: 20210525, end: 20210525
  4. OCREVUS [Suspect]
     Active Substance: OCRELIZUMAB
     Indication: Relapsing-remitting multiple sclerosis
     Dosage: 600 MILLIGRAM (DATE OF TREATMENT: 07/SEP/2020)
     Route: 042
     Dates: start: 20200305
  5. OCREVUS [Suspect]
     Active Substance: OCRELIZUMAB
     Indication: Primary progressive multiple sclerosis
     Dosage: 600 MILLIGRAM
     Route: 042
     Dates: start: 20200907
  6. OCREVUS [Suspect]
     Active Substance: OCRELIZUMAB
     Dosage: 300 MILLIGRAM
     Route: 042
     Dates: start: 20190806
  7. .DELTA.8-TETRAHYDROCANNABINOL\HERBALS [Concomitant]
     Active Substance: .DELTA.8-TETRAHYDROCANNABINOL\HERBALS
     Dosage: UNK
  8. ESCITALOPRAM [Concomitant]
     Active Substance: ESCITALOPRAM OXALATE
     Dosage: 20 MILLIGRAM
  9. LEVOTHYROXINE SODIUM [Concomitant]
     Active Substance: LEVOTHYROXINE SODIUM
     Dosage: 75 MICROGRAM
  10. CORTISONE [Concomitant]
     Active Substance: CORTISONE
     Indication: Premedication
     Dosage: UNK
     Dates: start: 20200305, end: 20200305
  11. MIRABEGRON [Concomitant]
     Active Substance: MIRABEGRON
     Dosage: UNK
  12. DULOXETINE [Concomitant]
     Active Substance: DULOXETINE
     Dosage: UNK
  13. THYROX [Concomitant]
     Dosage: UNK
  14. TROSPIUM CHLORIDE [Concomitant]
     Active Substance: TROSPIUM CHLORIDE
     Dosage: UNK
  15. ATOSIL                             /00033002/ [Concomitant]
     Dosage: 75 MILLIGRAM
  16. SELENASE                           /00075004/ [Concomitant]
     Dosage: UNK
  17. PYOLYSIN                           /09570301/ [Concomitant]
     Indication: Wound
     Dosage: UNK
  18. DIMETHYL SULFONE [Concomitant]
     Active Substance: DIMETHYL SULFONE
     Dosage: UNK
  19. COMIRNATY [Suspect]
     Active Substance: TOZINAMERAN
     Indication: COVID-19 immunisation
     Dosage: UNK, DOSE 2, SINGLE
     Dates: start: 20210525, end: 20210525

REACTIONS (21)
  - Multiple sclerosis [Not Recovered/Not Resolved]
  - Reaction to excipient [Not Recovered/Not Resolved]
  - Alopecia [Recovered/Resolved]
  - Sciatica [Not Recovered/Not Resolved]
  - Fatigue [Not Recovered/Not Resolved]
  - Skin odour abnormal [Recovered/Resolved]
  - Burning sensation [Not Recovered/Not Resolved]
  - Rhinorrhoea [Recovered/Resolved]
  - Dry skin [Recovered/Resolved]
  - B-lymphocyte count increased [Recovered/Resolved]
  - Hypoaesthesia [Not Recovered/Not Resolved]
  - Prurigo [Not Recovered/Not Resolved]
  - Urinary incontinence [Not Recovered/Not Resolved]
  - Hot flush [Recovered/Resolved]
  - Hypersensitivity [Not Recovered/Not Resolved]
  - Dermatitis allergic [Unknown]
  - Genital tract inflammation [Not Recovered/Not Resolved]
  - Genital herpes [Recovered/Resolved]
  - Drug hypersensitivity [Not Recovered/Not Resolved]
  - Inflammation [Not Recovered/Not Resolved]
  - Vulvovaginitis [Not Recovered/Not Resolved]

NARRATIVE: CASE EVENT DATE: 20190806
